FAERS Safety Report 6286100-2 (Version None)
Quarter: 2009Q3

REPORT INFORMATION
  Report Type: 
  Country: None (occurrence: None)
  Receive Date: 20090728
  Receipt Date: 20090715
  Transmission Date: 20100115
  Serious: Yes (Hospitalization)
  Sender: FDA-Public Use
  Company Number: JP-ROCHE-606859

PATIENT
  Sex: Female
  Weight: 56.5 kg

DRUGS (32)
  1. MYCOPHENOLATE MOFETIL [Suspect]
     Indication: PROPHYLAXIS AGAINST TRANSPLANT REJECTION
     Route: 048
     Dates: start: 20060701, end: 20060802
  2. MYCOPHENOLATE MOFETIL [Suspect]
     Dosage: DOSE DECREASED
     Route: 048
     Dates: start: 20060803, end: 20060804
  3. MYCOPHENOLATE MOFETIL [Suspect]
     Dosage: DOSE INCREASED
     Route: 048
     Dates: start: 20060805, end: 20060829
  4. MYCOPHENOLATE MOFETIL [Suspect]
     Dosage: DOSE DECREASED
     Route: 048
     Dates: start: 20060830, end: 20060830
  5. MYCOPHENOLATE MOFETIL [Suspect]
     Dosage: DOSE DECREASED
     Route: 048
     Dates: start: 20060831, end: 20061013
  6. MYCOPHENOLATE MOFETIL [Suspect]
     Dosage: DOSE DECREASED
     Route: 048
     Dates: start: 20061014, end: 20080205
  7. MYCOPHENOLATE MOFETIL [Suspect]
     Dosage: DOSE DECREASED
     Route: 048
     Dates: start: 20080206
  8. PROGRAF [Suspect]
     Indication: PROPHYLAXIS AGAINST TRANSPLANT REJECTION
     Dosage: NOTE: 1 MG - 14 MG
     Route: 048
     Dates: start: 20060701
  9. MEDROL [Suspect]
     Indication: PROPHYLAXIS AGAINST TRANSPLANT REJECTION
     Dosage: NOTE: 4 MG - 440 MG
     Route: 048
     Dates: start: 20060128
  10. SIMULECT [Concomitant]
     Dosage: ROUTE: INTRAVENOUS NOS
     Route: 042
     Dates: start: 20060629, end: 20060629
  11. SIMULECT [Concomitant]
     Route: 042
     Dates: start: 20060703, end: 20060703
  12. SOLU-MEDROL [Concomitant]
     Dosage: ROUTE: INTRAVENOUS NOS NOTE: 125 MG - 500 MG
     Route: 042
     Dates: start: 20061005, end: 20061009
  13. SOLU-MEDROL [Concomitant]
     Dosage: NOTE: 375 MG - 500 MG
     Route: 042
     Dates: start: 20070607, end: 20070609
  14. ESPO [Concomitant]
     Dosage: DOSE: 12000 UT ROUTE: INTRAVENOUS NOS
     Route: 042
     Dates: start: 20060708, end: 20061026
  15. FERROMIA [Concomitant]
     Dosage: FORM: ORAL FORMULATION NOS NOTE: 100 MG - 150 MG
     Route: 048
     Dates: start: 20060921, end: 20061207
  16. FERROMIA [Concomitant]
     Route: 048
     Dates: start: 20070510
  17. PARIET [Concomitant]
     Route: 048
     Dates: start: 20060921, end: 20061207
  18. PARIET [Concomitant]
     Route: 048
     Dates: start: 20070124
  19. BLOPRESS [Concomitant]
     Route: 048
     Dates: start: 20060921, end: 20061207
  20. NEUTROGIN [Concomitant]
     Dosage: ROUTE: INTRAVENOUS NOS
     Route: 042
     Dates: start: 20061020, end: 20061103
  21. ASPIRIN [Concomitant]
     Dosage: FORM: ENTERIC
     Route: 048
     Dates: start: 20070124
  22. PANALDINE [Concomitant]
     Dosage: FORM: ORAL FORMULATION NOS
     Route: 048
     Dates: start: 20070124
  23. GLAKAY [Concomitant]
     Route: 048
     Dates: start: 20070124
  24. LASIX [Concomitant]
     Dosage: FORM: ORAL FORMULATION NOS
     Route: 048
     Dates: start: 20070126, end: 20070128
  25. LASIX [Concomitant]
     Route: 048
     Dates: start: 20071206, end: 20080211
  26. ZYLORIC [Concomitant]
     Route: 048
     Dates: start: 20070510
  27. ZYLORIC [Concomitant]
     Dosage: DOSE INCREASED
     Route: 048
  28. CRAVIT [Concomitant]
     Dosage: ORAL FORMULATION NOS
     Route: 048
     Dates: start: 20070510, end: 20070517
  29. CRAVIT [Concomitant]
     Route: 048
     Dates: start: 20070712, end: 20070719
  30. CRAVIT [Concomitant]
     Route: 048
     Dates: start: 20070731, end: 20070801
  31. CALBLOCK [Concomitant]
     Route: 048
     Dates: start: 20070727
  32. BAKTAR [Concomitant]
     Route: 048
     Dates: start: 20080111, end: 20080612

REACTIONS (4)
  - PYELONEPHRITIS [None]
  - RENAL ARTERY STENOSIS [None]
  - URINARY TRACT INFECTION [None]
  - VESICOURETERIC REFLUX [None]
